FAERS Safety Report 6987689-8 (Version None)
Quarter: 2010Q3

REPORT INFORMATION
  Report Type: 
  Country: None (occurrence: None)
  Receive Date: 20100916
  Receipt Date: 20100806
  Transmission Date: 20110219
  Serious: No
  Sender: FDA-Public Use
  Company Number: US-ABBOTT-10P-163-0645548-00

PATIENT
  Sex: Male
  Weight: 75.818 kg

DRUGS (6)
  1. TRILIPIX [Suspect]
     Indication: BLOOD CHOLESTEROL INCREASED
     Dates: start: 20091101, end: 20100301
  2. ZEBITA [Concomitant]
     Indication: HYPERTENSION
  3. PLAVIX [Concomitant]
     Indication: CORONARY ARTERIAL STENT INSERTION
  4. FLEXERIL [Concomitant]
     Indication: NECK PAIN
  5. LORTAB [Concomitant]
     Indication: NECK PAIN
  6. PHENERGAN [Concomitant]
     Indication: NAUSEA

REACTIONS (1)
  - BLOOD CREATINE PHOSPHOKINASE INCREASED [None]
